FAERS Safety Report 18143615 (Version 1)
Quarter: 2020Q3

REPORT INFORMATION
  Report Type: Spontaneous
  Country: US (occurrence: US)
  Receive Date: 20200813
  Receipt Date: 20200813
  Transmission Date: 20201103
  Serious: No
  Sender: FDA-Public Use
  Company Number: US-TARO-2019TAR00784

PATIENT
  Sex: Female

DRUGS (2)
  1. ADAPALENE GEL 0.3% [Suspect]
     Active Substance: ADAPALENE
     Indication: ACNE
     Dosage: ^APPLY A PEA?SIZED AMOUNT^, 1X/DAY AT NIGHT OVER MOISTURIZER
     Route: 061
     Dates: start: 2019
  2. MULTIVITAMIN [Concomitant]
     Active Substance: VITAMINS
     Dosage: UNK

REACTIONS (2)
  - Acne [Unknown]
  - Product substitution issue [Unknown]

NARRATIVE: CASE EVENT DATE: 2019
